FAERS Safety Report 8731516 (Version 3)
Quarter: 2012Q4

REPORT INFORMATION
  Report Type: 
  Country: US (occurrence: US)
  Receive Date: 20120820
  Receipt Date: 20120904
  Transmission Date: 20130627
  Serious: Yes (Hospitalization)
  Sender: FDA-Public Use
  Company Number: US-AMGEN-USASP2012045123

PATIENT
  Age: 69 Year
  Sex: Female
  Weight: 80.73 kg

DRUGS (8)
  1. PROLIA [Suspect]
     Indication: OSTEOPOROSIS POSTMENOPAUSAL
     Dosage: 60 mg, q6mo
     Route: 058
     Dates: start: 2010, end: 20120705
  2. PREDNISONE [Suspect]
     Indication: RHEUMATOID ARTHRITIS
     Dosage: 8 mg, qd
     Route: 048
  3. METHOTREXATE [Suspect]
     Indication: RHEUMATOID ARTHRITIS
     Dosage: 7.5 mg, UNK
     Route: 048
  4. CIMZIA [Suspect]
     Indication: RHEUMATOID ARTHRITIS
     Dosage: 400 mug, UNK
     Route: 058
     Dates: start: 20120201
  5. NEXIUM                             /01479302/ [Concomitant]
     Indication: GASTROOESOPHAGEAL REFLUX DISEASE
     Dosage: 40 mg, qd
     Route: 048
  6. DIOVAN HCT [Concomitant]
     Indication: HYPERTENSION
     Dosage: UNK UNK, qd
     Route: 048
  7. CORTICOSTEROIDS [Concomitant]
     Dosage: UNK
  8. ANTI-TUMOR NECROSIS FACTOR MONOCLON. ANTIBODY [Concomitant]
     Dosage: UNK

REACTIONS (9)
  - Encephalopathy [Unknown]
  - Altered state of consciousness [Unknown]
  - Sepsis [Unknown]
  - Hypotension [Unknown]
  - Hyponatraemia [Unknown]
  - Renal failure acute [Unknown]
  - Dehydration [Unknown]
  - Anaemia [Unknown]
  - Pneumonia [Recovered/Resolved]
